FAERS Safety Report 9060472 (Version 3)
Quarter: 2014Q3

REPORT INFORMATION
  Report Type: Spontaneous
  Country: DE (occurrence: DE)
  Receive Date: 20130212
  Receipt Date: 20140805
  Transmission Date: 20150326
  Serious: Yes (Congenital Anomaly)
  Sender: FDA-Public Use
  Company Number: PHHY2013DE011889

PATIENT
  Age: 1 Day
  Sex: Male

DRUGS (9)
  1. VOTUM//OLMESARTAN MEDOXOMIL [Suspect]
     Active Substance: OLMESARTAN MEDOXOMIL
     Dosage: (MATERNAL DOSE: 40 MG/DAY)
     Route: 064
     Dates: end: 20080918
  2. NIFEDIPINE. [Suspect]
     Active Substance: NIFEDIPINE
     Dosage: (MATERNAL DOSE: 40 MG/DAY)
     Route: 064
  3. CARMEN [Suspect]
     Active Substance: LERCANIDIPINE
     Dosage: (MATERNAL DOSE: 20 MG/DAY)
     Route: 064
  4. KALETRA [Suspect]
     Active Substance: LOPINAVIR\RITONAVIR
     Dosage: (MATERNAL DOSE: 500/ 2000 MG/DAY)
     Route: 064
  5. BELOC-ZOC MITE [Suspect]
     Active Substance: METOPROLOL SUCCINATE
     Route: 064
     Dates: start: 20080605, end: 20090226
  6. METHYLDOPA. [Suspect]
     Active Substance: METHYLDOPA
     Dosage: (MATERNAL DOSE: 250 MG/DAY)
     Route: 064
  7. KALETRA [Suspect]
     Active Substance: LOPINAVIR\RITONAVIR
     Dosage: (MATERNAL DOSE: 500 MG/DAY)
     Route: 064
  8. ENALAPRIL [Suspect]
     Active Substance: ENALAPRIL
     Dosage: (MATERNAL DOSE: 20 MG/DAY)
     Route: 064
     Dates: end: 20080918
  9. TRUVADA [Suspect]
     Active Substance: EMTRICITABINE\TENOFOVIR DISOPROXIL FUMARATE
     Dosage: (MATERNAL DOSE: 240/245 MG/DAY)
     Route: 064

REACTIONS (7)
  - Congenital choroid plexus cyst [Unknown]
  - Kidney duplex [Unknown]
  - Foetal exposure during pregnancy [Unknown]
  - Congenital hearing disorder [Unknown]
  - Supernumerary nipple [Unknown]
  - Caesarean section [None]
  - Maternal drugs affecting foetus [None]
